FAERS Safety Report 26192216 (Version 1)
Quarter: 2025Q4

REPORT INFORMATION
  Report Type: Spontaneous
  Country: US (occurrence: US)
  Receive Date: 20251223
  Receipt Date: 20251223
  Transmission Date: 20260117
  Serious: Yes (Other)
  Sender: GLENMARK
  Company Number: US-GLENMARK PHARMACEUTICALS-2025GMK106732

PATIENT

DRUGS (1)
  1. URSODIOL [Suspect]
     Active Substance: URSODIOL
     Indication: Gallbladder disorder
     Dosage: UNK
     Route: 065

REACTIONS (3)
  - Large intestinal obstruction [Unknown]
  - Vomiting [Unknown]
  - Therapeutic response unexpected [Unknown]
